FAERS Safety Report 9895148 (Version 1)
Quarter: 2014Q1

REPORT INFORMATION
  Report Type: Spontaneous
  Country: US (occurrence: US)
  Receive Date: 20140213
  Receipt Date: 20140213
  Transmission Date: 20141002
  Serious: No
  Sender: FDA-Public Use
  Company Number: US-BRISTOL-MYERS SQUIBB COMPANY-18911735

PATIENT
  Age: 35 Year
  Sex: Female
  Weight: 61.22 kg

DRUGS (10)
  1. ORENCIA [Suspect]
     Indication: RHEUMATOID ARTHRITIS
     Dosage: LAST INFUSION: 16MAY2013.
     Route: 042
     Dates: start: 201303
  2. TRAMADOL [Concomitant]
  3. AMBIEN [Concomitant]
  4. FLEXERIL [Concomitant]
  5. NEURONTIN [Concomitant]
     Dosage: DOSE FREQUENCY INCREASED TO 3 TABS A DAY
  6. METHOTREXATE [Concomitant]
  7. SEASONIQUE [Concomitant]
  8. FOLIC ACID [Concomitant]
  9. NEXIUM [Concomitant]
     Indication: GASTROOESOPHAGEAL REFLUX DISEASE
  10. CELEBREX [Concomitant]
     Dosage: TAKE 2 MORE TABLETS AS NEEDED

REACTIONS (2)
  - Burning sensation [Not Recovered/Not Resolved]
  - Paraesthesia [Not Recovered/Not Resolved]
